FAERS Safety Report 5670790-9 (Version None)
Quarter: 2008Q1

REPORT INFORMATION
  Report Type: 
  Country: None (occurrence: None)
  Receive Date: 20080318
  Receipt Date: 20080307
  Transmission Date: 20080703
  Serious: Yes (Other)
  Sender: FDA-Public Use
  Company Number: US-JNJFOC-20080302294

PATIENT
  Sex: Female
  Weight: 64.41 kg

DRUGS (1)
  1. FENTANYL TRANSDERMAL SYSTEM [Suspect]
     Indication: PAIN
     Route: 062

REACTIONS (8)
  - APPLICATION SITE PRURITUS [None]
  - APPLICATION SITE WARMTH [None]
  - EYE DISORDER [None]
  - FATIGUE [None]
  - HYPERHIDROSIS [None]
  - INAPPROPRIATE SCHEDULE OF DRUG ADMINISTRATION [None]
  - POLYP [None]
  - RESTLESSNESS [None]
